FAERS Safety Report 6589473-6 (Version None)
Quarter: 2010Q1

REPORT INFORMATION
  Report Type: 
  Country: None (occurrence: None)
  Receive Date: 20100218
  Receipt Date: 20100209
  Transmission Date: 20100710
  Serious: Yes (Hospitalization)
  Sender: FDA-Public Use
  Company Number: US-AMGEN-QUU392252

PATIENT
  Sex: Female

DRUGS (2)
  1. ENBREL [Suspect]
     Route: 064
     Dates: start: 20030101
  2. LEFLUNOMIDE [Concomitant]
     Route: 064

REACTIONS (1)
  - UMBILICAL CORD AROUND NECK [None]
